FAERS Safety Report 7906224-0 (Version None)
Quarter: 2011Q4

REPORT INFORMATION
  Report Type: 
  Country: None (occurrence: None)
  Receive Date: 20111110
  Receipt Date: 20111102
  Transmission Date: 20120403
  Serious: Yes (Hospitalization, Other)
  Sender: FDA-Public Use
  Company Number: US-ASTELLAS-2011US004963

PATIENT
  Sex: Male
  Weight: 72 kg

DRUGS (4)
  1. TARCEVA [Suspect]
     Indication: HEPATIC NEOPLASM MALIGNANT
     Dosage: 150 MG, UID/QD
     Route: 048
     Dates: start: 20110510, end: 20110725
  2. AVASTIN [Suspect]
     Indication: HEPATIC NEOPLASM MALIGNANT
     Dosage: 10 MG/KG, Q2W
     Route: 042
     Dates: start: 20110501, end: 20110701
  3. BACTRIM [Concomitant]
     Indication: PROPHYLAXIS
     Dosage: 160 MG, BID SA/SU
     Route: 048
     Dates: start: 20110501
  4. AVASTIN [Suspect]
     Dosage: 10 MG/KG, Q2W
     Route: 042

REACTIONS (8)
  - EOSINOPHILIC OESOPHAGITIS [None]
  - SKIN EXFOLIATION [None]
  - MUCOSAL INFLAMMATION [None]
  - GASTRITIS [None]
  - OESOPHAGEAL ULCER [None]
  - OFF LABEL USE [None]
  - DERMATITIS ACNEIFORM [None]
  - NOSOCOMIAL INFECTION [None]
